FAERS Safety Report 24340325 (Version 1)
Quarter: 2024Q3

REPORT INFORMATION
  Report Type: Spontaneous
  Country: ES (occurrence: ES)
  Receive Date: 20240919
  Receipt Date: 20240919
  Transmission Date: 20241017
  Serious: Yes (Other)
  Sender: AMGEN
  Company Number: ES-AMGEN-ESPSP2024183866

PATIENT

DRUGS (2)
  1. BEVACIZUMAB [Suspect]
     Active Substance: BEVACIZUMAB
     Indication: Hepatocellular carcinoma
     Dosage: 15 MILLIGRAM/KILOGRAM, Q3WK
     Route: 042
  2. ATEZOLIZUMAB [Concomitant]
     Active Substance: ATEZOLIZUMAB
     Indication: Hepatocellular carcinoma
     Dosage: 1200 MILLIGRAM
     Route: 042

REACTIONS (22)
  - Hepatocellular carcinoma [Unknown]
  - Hepatic failure [Unknown]
  - Encephalopathy [Unknown]
  - Neurotoxicity [Unknown]
  - Abdominal sepsis [Unknown]
  - Pulmonary embolism [Unknown]
  - Drug effective for unapproved indication [Unknown]
  - Hepatic function abnormal [Unknown]
  - Haematoma muscle [Unknown]
  - Thyroid disorder [Unknown]
  - Off label use [Unknown]
  - Disease complication [Unknown]
  - Therapy non-responder [Unknown]
  - Therapy partial responder [Unknown]
  - Haemorrhage [Unknown]
  - Fatigue [Unknown]
  - Decreased appetite [Unknown]
  - Infection [Unknown]
  - Hypertension [Unknown]
  - Proteinuria [Unknown]
  - Impaired healing [Unknown]
  - Infusion related reaction [Unknown]
